FAERS Safety Report 20344060 (Version 2)
Quarter: 2022Q1

REPORT INFORMATION
  Report Type: Spontaneous
  Country: US (occurrence: US)
  Receive Date: 20220118
  Receipt Date: 20220220
  Transmission Date: 20220423
  Serious: No
  Sender: FDA-Public Use
  Company Number: US-GLAXOSMITHKLINE-US2022005601

PATIENT
  Sex: Female

DRUGS (1)
  1. ZEJULA [Suspect]
     Active Substance: NIRAPARIB
     Indication: Ovarian cancer
     Dosage: 200 MG, QD (PM)
     Dates: start: 20210715

REACTIONS (5)
  - Red blood cell count decreased [Unknown]
  - Abdominal pain upper [Unknown]
  - Colitis [Unknown]
  - Fall [Unknown]
  - Pain [Unknown]
